FAERS Safety Report 5061135-6 (Version None)
Quarter: 2006Q3

REPORT INFORMATION
  Report Type: 
  Country: None (occurrence: None)
  Receive Date: 20060720
  Receipt Date: 20060707
  Transmission Date: 20061208
  Serious: Yes (Disabling, Congenital Anomaly, Other)
  Sender: FDA-Public Use
  Company Number: 200614592BWH

PATIENT
  Sex: Male

DRUGS (1)
  1. LEVITRA [Suspect]
     Dosage: INTRA-UTERINE
     Route: 015
     Dates: start: 20050101

REACTIONS (3)
  - DEAFNESS CONGENITAL [None]
  - DEAFNESS UNILATERAL [None]
  - TRANSMISSION OF DRUG VIA SEMEN [None]
